FAERS Safety Report 6414729-7 (Version None)
Quarter: 2009Q4

REPORT INFORMATION
  Report Type: 
  Country: None (occurrence: None)
  Receive Date: 20091026
  Receipt Date: 20091015
  Transmission Date: 20100525
  Serious: Yes (Hospitalization, Other)
  Sender: FDA-Public Use
  Company Number: US-ABBOTT-09P-163-0603770-00

PATIENT
  Sex: Female
  Weight: 86.26 kg

DRUGS (6)
  1. SYNTHROID [Suspect]
     Indication: THYROID DISORDER
     Route: 048
     Dates: start: 20060101, end: 20091001
  2. VICODIN [Suspect]
     Indication: PROCEDURAL PAIN
     Dates: start: 20080501, end: 20080501
  3. VICODIN [Suspect]
     Indication: SHOULDER OPERATION
  4. CODEINE [Suspect]
     Indication: PROCEDURAL PAIN
     Dates: start: 20080501, end: 20080501
  5. CODEINE [Suspect]
     Indication: SHOULDER OPERATION
  6. IMITREX [Concomitant]
     Indication: MIGRAINE

REACTIONS (10)
  - ARTHROPATHY [None]
  - ASTHENIA [None]
  - DRY MOUTH [None]
  - DYSPNOEA [None]
  - EXPIRED DRUG ADMINISTERED [None]
  - GAIT DISTURBANCE [None]
  - PRURITUS [None]
  - SENSORY DISTURBANCE [None]
  - THIRST [None]
  - WEIGHT INCREASED [None]
